FAERS Safety Report 7094059-3 (Version None)
Quarter: 2010Q4

REPORT INFORMATION
  Report Type: 
  Country: None (occurrence: None)
  Receive Date: 20101110
  Receipt Date: 20101028
  Transmission Date: 20110411
  Serious: Yes (Hospitalization, Other)
  Sender: FDA-Public Use
  Company Number: US-ELI_LILLY_AND_COMPANY-US201011000236

PATIENT
  Sex: Female

DRUGS (1)
  1. PROZAC [Suspect]
     Indication: DEPRESSION
     Route: 061

REACTIONS (4)
  - GASTRIC BYPASS [None]
  - GASTROSTOMY TUBE INSERTION [None]
  - OFF LABEL USE [None]
  - PARENTERAL NUTRITION [None]
